FAERS Safety Report 21886837 (Version 1)
Quarter: 2023Q1

REPORT INFORMATION
  Report Type: Report from Study
  Country: CA (occurrence: CA)
  Receive Date: 20230119
  Receipt Date: 20230119
  Transmission Date: 20230417
  Serious: Yes (Hospitalization, Other)
  Sender: FDA-Public Use
  Company Number: CA-BAYER-2023A001141

PATIENT
  Age: 61 Year
  Sex: Male

DRUGS (1)
  1. STIVARGA [Suspect]
     Active Substance: REGORAFENIB
     Indication: Colorectal cancer
     Dosage: UNK
     Route: 048
     Dates: start: 20220926

REACTIONS (4)
  - Fall [Unknown]
  - Dysstasia [None]
  - Asthenia [Unknown]
  - Hospitalisation [None]
